FAERS Safety Report 5398978-5 (Version None)
Quarter: 2007Q3

REPORT INFORMATION
  Report Type: 
  Country: None (occurrence: None)
  Receive Date: 20070727
  Receipt Date: 20070717
  Transmission Date: 20080115
  Serious: Yes (Other)
  Sender: FDA-Public Use
  Company Number: PT-AMGEN-UK235292

PATIENT
  Sex: Female

DRUGS (4)
  1. MIMPARA [Suspect]
     Indication: HYPERPARATHYROIDISM SECONDARY
     Route: 048
     Dates: start: 20060801, end: 20070320
  2. FOLIC ACID [Concomitant]
     Route: 048
     Dates: start: 20060101
  3. ASPIRIN [Concomitant]
     Route: 048
     Dates: start: 20060101
  4. CALCIUM CARBONATE [Concomitant]
     Route: 048
     Dates: start: 20060101

REACTIONS (1)
  - ABORTION SPONTANEOUS [None]
